FAERS Safety Report 5106023-1 (Version None)
Quarter: 2006Q3

REPORT INFORMATION
  Report Type: 
  Country: None (occurrence: None)
  Receive Date: 20060912
  Receipt Date: 20060908
  Transmission Date: 20061208
  Serious: Yes (Death, Hospitalization)
  Sender: FDA-Public Use
  Company Number: 163-21880-06090260

PATIENT
  Age: 76 Year
  Sex: Female

DRUGS (2)
  1. REVLIMID [Suspect]
     Indication: MYELODYSPLASTIC SYNDROME
     Dosage: 1 IN 1 D, ORAL
     Route: 048
     Dates: start: 20060420, end: 20060101
  2. MORPHINE [Concomitant]

REACTIONS (3)
  - ACUTE LEUKAEMIA [None]
  - DISEASE PROGRESSION [None]
  - UNEVALUABLE EVENT [None]
